FAERS Safety Report 6443410-3 (Version None)
Quarter: 2009Q4

REPORT INFORMATION
  Report Type: 
  Country: None (occurrence: None)
  Receive Date: 20091117
  Receipt Date: 20091109
  Transmission Date: 20100525
  Serious: Yes (Other)
  Sender: FDA-Public Use
  Company Number: GB-PFIZER INC-2009294673

PATIENT
  Age: 14 Year
  Sex: Female
  Weight: 46 kg

DRUGS (3)
  1. DEPO-PROVERA [Suspect]
     Indication: OFF LABEL USE
     Dosage: UNK
     Dates: start: 20090621
  2. DEPO-PROVERA [Suspect]
     Indication: MENORRHAGIA
  3. NULYTELY [Concomitant]
     Dosage: UNK

REACTIONS (9)
  - ARTHRALGIA [None]
  - DECREASED APPETITE [None]
  - DEPRESSION [None]
  - GINGIVAL BLEEDING [None]
  - GINGIVAL SWELLING [None]
  - HAEMORRHAGIC DIATHESIS [None]
  - PETECHIAE [None]
  - TEARFULNESS [None]
  - WEIGHT DECREASED [None]
